FAERS Safety Report 26172910 (Version 1)
Quarter: 2025Q4

REPORT INFORMATION
  Report Type: Report from Study
  Country: ZA (occurrence: ZA)
  Receive Date: 20251218
  Receipt Date: 20251218
  Transmission Date: 20260118
  Serious: Yes (Other)
  Sender: ROCHE
  Company Number: ZA-ROCHE-10000397919

PATIENT
  Age: 31 Year
  Sex: Female

DRUGS (4)
  1. OCREVUS [Suspect]
     Active Substance: OCRELIZUMAB
     Indication: Relapsing-remitting multiple sclerosis
     Route: 041
  2. OCREVUS [Suspect]
     Active Substance: OCRELIZUMAB
     Route: 041
  3. OCREVUS [Suspect]
     Active Substance: OCRELIZUMAB
     Route: 041
  4. OCREVUS [Suspect]
     Active Substance: OCRELIZUMAB
     Route: 041

REACTIONS (1)
  - Multiple sclerosis [Unknown]
